FAERS Safety Report 20606872 (Version 1)
Quarter: 2022Q1

REPORT INFORMATION
  Report Type: Spontaneous
  Country: SE (occurrence: SE)
  Receive Date: 20220317
  Receipt Date: 20220317
  Transmission Date: 20220424
  Serious: Yes (Other)
  Sender: FDA-Public Use
  Company Number: SE-ELI_LILLY_AND_COMPANY-SE202203003256

PATIENT
  Age: 22 Year
  Sex: Female

DRUGS (1)
  1. ZYPREXA [Suspect]
     Active Substance: OLANZAPINE
     Indication: Hallucination
     Dosage: UNK UNK, UNKNOWN
     Route: 065
     Dates: end: 202102

REACTIONS (1)
  - Prolactin-producing pituitary tumour [Unknown]

NARRATIVE: CASE EVENT DATE: 20191201
